FAERS Safety Report 5596593-1 (Version None)
Quarter: 2008Q1

REPORT INFORMATION
  Report Type: 
  Country: None (occurrence: None)
  Receive Date: 20080118
  Receipt Date: 20080107
  Transmission Date: 20080703
  Serious: Yes (Hospitalization)
  Sender: FDA-Public Use
  Company Number: US-PFIZER INC-2008002250

PATIENT
  Sex: Female

DRUGS (4)
  1. LYRICA [Suspect]
  2. ATIVAN [Concomitant]
  3. OXYCONTIN [Concomitant]
  4. TRAMADOL HCL [Concomitant]

REACTIONS (2)
  - INTENTIONAL DRUG MISUSE [None]
  - RESPIRATORY DEPRESSION [None]
